FAERS Safety Report 22160651 (Version 1)
Quarter: 2023Q1

REPORT INFORMATION
  Report Type: Report from Study
  Country: US (occurrence: US)
  Receive Date: 20230331
  Receipt Date: 20230331
  Transmission Date: 20230417
  Serious: Yes (Other)
  Sender: FDA-Public Use
  Company Number: US-ABBVIE-4711244

PATIENT
  Age: 71 Year
  Sex: Female

DRUGS (1)
  1. SKYRIZI [Suspect]
     Active Substance: RISANKIZUMAB-RZAA
     Indication: Psoriasis
     Route: 058
     Dates: start: 20221208

REACTIONS (4)
  - Loss of consciousness [Recovering/Resolving]
  - Fall [Unknown]
  - Blood urine present [Recovering/Resolving]
  - Bone contusion [Recovering/Resolving]

NARRATIVE: CASE EVENT DATE: 20230323
